FAERS Safety Report 22708837 (Version 2)
Quarter: 2023Q4

REPORT INFORMATION
  Report Type: Report from Study
  Country: US (occurrence: US)
  Receive Date: 20230716
  Receipt Date: 20231002
  Transmission Date: 20240109
  Serious: Yes (Other)
  Sender: FDA-Public Use
  Company Number: US-ABBVIE-5327428

PATIENT
  Sex: Male

DRUGS (1)
  1. VENCLEXTA [Suspect]
     Active Substance: VENETOCLAX
     Indication: Chronic lymphocytic leukaemia (in remission)
     Dosage: TAKE EIGHT TABLETS BY MOUTH 400MG DAILY TAKE AT THE SAME TIME EVERY DAY WITH FOOD?AND A GLASS OF ...
     Route: 048

REACTIONS (1)
  - Deafness [Unknown]
